FAERS Safety Report 6215251-3 (Version None)
Quarter: 2009Q2

REPORT INFORMATION
  Report Type: 
  Country: None (occurrence: None)
  Receive Date: 20090604
  Receipt Date: 20090526
  Transmission Date: 20091009
  Serious: Yes (Other)
  Sender: FDA-Public Use
  Company Number: GB-BAYER-200911914BNE

PATIENT
  Sex: Female

DRUGS (1)
  1. CANESTEN PESSARY [Suspect]
     Indication: VULVOVAGINAL CANDIDIASIS
     Dates: start: 20090525

REACTIONS (1)
  - VAGINAL HAEMORRHAGE [None]
